FAERS Safety Report 7791875-7 (Version None)
Quarter: 2011Q4

REPORT INFORMATION
  Report Type: 
  Country: None (occurrence: None)
  Receive Date: 20111003
  Receipt Date: 20110928
  Transmission Date: 20120403
  Serious: No
  Sender: FDA-Public Use
  Company Number: US-PFIZER INC-2011232030

PATIENT
  Sex: Male
  Weight: 86.168 kg

DRUGS (2)
  1. PRISTIQ [Suspect]
     Indication: DEPRESSION
     Dosage: 50 MG, 1X/DAY
     Route: 048
     Dates: start: 20110801, end: 20110914
  2. PRISTIQ [Suspect]
     Dosage: 100 MG, 1X/DAY
     Dates: start: 20110914, end: 20110928

REACTIONS (8)
  - PARAESTHESIA [None]
  - HYPERHIDROSIS [None]
  - HEADACHE [None]
  - DRUG INTOLERANCE [None]
  - DRUG INEFFECTIVE [None]
  - VOMITING [None]
  - NAUSEA [None]
  - INSOMNIA [None]
